FAERS Safety Report 7418915-9 (Version None)
Quarter: 2011Q2

REPORT INFORMATION
  Report Type: 
  Country: None (occurrence: None)
  Receive Date: 20110415
  Receipt Date: 20110404
  Transmission Date: 20111010
  Serious: Yes (Other)
  Sender: FDA-Public Use
  Company Number: FR-ELI_LILLY_AND_COMPANY-FR201102000178

PATIENT
  Sex: Male

DRUGS (6)
  1. ZYPREXA [Suspect]
     Indication: SCHIZOPHRENIA
     Dosage: 30 MG, DAILY (1/D)
     Route: 048
     Dates: start: 20100628, end: 20100721
  2. TRUVADA [Concomitant]
     Indication: HIV INFECTION
     Route: 048
  3. ZYPADHERA [Suspect]
     Indication: SCHIZOPHRENIA
     Dosage: 300 MG, EVERY 2 WEEKS
     Route: 030
     Dates: start: 20100720, end: 20110201
  4. VALIUM [Concomitant]
     Indication: SCHIZOPHRENIA
     Dosage: 10 MG, DAILY (1/D)
     Route: 048
     Dates: start: 20100601
  5. BACTRIM [Concomitant]
     Indication: HIV INFECTION
     Route: 048
  6. REYATAZ [Concomitant]
     Indication: HIV INFECTION
     Dosage: 300 MG, UNK
     Route: 048

REACTIONS (18)
  - OXYGEN SATURATION DECREASED [None]
  - ANXIETY [None]
  - EXTRAPYRAMIDAL DISORDER [None]
  - LOSS OF CONSCIOUSNESS [None]
  - INCOHERENT [None]
  - DIZZINESS [None]
  - SEDATION [None]
  - DISORIENTATION [None]
  - DYSARTHRIA [None]
  - OVERDOSE [None]
  - CYANOSIS [None]
  - AGGRESSION [None]
  - ATAXIA [None]
  - ASTHENIA [None]
  - HYPOTENSION [None]
  - CONFUSIONAL STATE [None]
  - AGITATION [None]
  - NEGATIVISM [None]
